FAERS Safety Report 23896063 (Version 1)
Quarter: 2024Q2

REPORT INFORMATION
  Report Type: Spontaneous
  Country: DE (occurrence: DE)
  Receive Date: 20240524
  Receipt Date: 20240524
  Transmission Date: 20240715
  Serious: Yes (Other)
  Sender: FDA-Public Use
  Company Number: None

PATIENT
  Age: 59 Year
  Sex: Female

DRUGS (21)
  1. MEROPENEM [Suspect]
     Active Substance: MEROPENEM
     Dosage: 2.5 MG, DAILY
     Route: 042
     Dates: start: 20000724, end: 20000727
  2. PROPOFOL [Suspect]
     Active Substance: PROPOFOL
     Indication: Sedation
     Dosage: 3 G, DAILY
     Route: 042
     Dates: start: 20000722, end: 20000725
  3. OMEPRAZOLE [Concomitant]
     Active Substance: DONEPEZIL HYDROCHLORIDE\OMEPRAZOLE\OMEPRAZOLE MAGNESIUM
     Indication: Skin ulcer
     Dosage: 80 MG, DAILY
     Route: 042
     Dates: start: 20000722
  4. HEPARIN [Concomitant]
     Active Substance: HEPARIN SODIUM
     Indication: Thrombosis
     Dosage: UNK
     Route: 042
     Dates: start: 20000722
  5. LASIX [Concomitant]
     Active Substance: FUROSEMIDE
     Indication: Oedema
     Dosage: 80 MG, DAILY
     Route: 042
     Dates: start: 20000722, end: 20000726
  6. PIPERACILLIN SODIUM [Concomitant]
     Active Substance: PIPERACILLIN SODIUM
     Dosage: 6 G, DAILY
     Route: 042
     Dates: start: 20000722, end: 20000723
  7. SULBACTAM SODIUM [Concomitant]
     Active Substance: SULBACTAM SODIUM
     Dosage: 3 G, DAILY
     Route: 042
     Dates: start: 20000722, end: 20000723
  8. METRONIDAZOLE [Concomitant]
     Active Substance: METRONIDAZOLE
     Dosage: UNK
     Route: 042
     Dates: start: 20000723, end: 20000723
  9. PIRITRAMIDE [Concomitant]
     Active Substance: PIRITRAMIDE
     Dosage: UNK
     Route: 042
     Dates: start: 20000722, end: 20000725
  10. FENTANYL [Concomitant]
     Active Substance: FENTANYL\FENTANYL CITRATE
     Dosage: UNK
     Route: 042
     Dates: start: 20000726
  11. NOREPINEPHRINE HYDROCHLORIDE, (+/-)- [Concomitant]
     Active Substance: NOREPINEPHRINE HYDROCHLORIDE, (+/-)-
     Dosage: UNK
     Route: 042
     Dates: start: 20000722
  12. POTASSIUM CHLORIDE [Concomitant]
     Active Substance: POTASSIUM CHLORIDE
     Dosage: UNK
     Route: 042
     Dates: start: 20000722
  13. ISOPTIN [Concomitant]
     Active Substance: VERAPAMIL HYDROCHLORIDE
     Dosage: UNK
     Route: 042
     Dates: start: 20000722, end: 20000725
  14. CALCIUM [Concomitant]
     Active Substance: CALCIUM
     Dosage: UNK
     Route: 042
     Dates: start: 20000722
  15. DOPAMINE [Concomitant]
     Active Substance: DOPAMINE HYDROCHLORIDE
     Dosage: UNK
     Route: 042
     Dates: start: 20000722
  16. AMBROXOL HYDROCHLORIDE [Concomitant]
     Active Substance: AMBROXOL HYDROCHLORIDE
     Dosage: UNK
     Route: 042
     Dates: start: 20000722
  17. HYDROCORTISONE [Concomitant]
     Active Substance: HYDROCORTISONE
     Dosage: UNK
     Route: 042
     Dates: start: 20000723
  18. VANCOMYCIN [Concomitant]
     Active Substance: VANCOMYCIN
     Dosage: 1 G, DAILY
     Route: 042
     Dates: start: 20000724
  19. OCTAGAM IMMUNE GLOBULIN (HUMAN) [Concomitant]
     Active Substance: HUMAN IMMUNOGLOBULIN G
     Dosage: 20 G, DAILY
     Route: 042
     Dates: start: 20000725, end: 20000726
  20. ACTRAPID [Concomitant]
     Active Substance: INSULIN HUMAN
     Dosage: UNK
  21. MIDAZOLAM HYDROCHLORIDE [Concomitant]
     Active Substance: MIDAZOLAM HYDROCHLORIDE
     Dosage: UNK
     Route: 042
     Dates: start: 20000726

REACTIONS (3)
  - Rhabdomyolysis [Unknown]
  - Acute kidney injury [Unknown]
  - Blood creatine phosphokinase increased [Unknown]

NARRATIVE: CASE EVENT DATE: 20000726
